FAERS Safety Report 14219983 (Version 1)
Quarter: 2017Q4

REPORT INFORMATION
  Report Type: Spontaneous
  Country: US (occurrence: US)
  Receive Date: 20171123
  Receipt Date: 20171123
  Transmission Date: 20180321
  Serious: Yes (Death, Life-Threatening, Hospitalization)
  Sender: FDA-Public Use
  Company Number: US-JNJFOC-20171117011

PATIENT

DRUGS (2)
  1. DARZALEX [Suspect]
     Active Substance: DARATUMUMAB
     Indication: PLASMA CELL MYELOMA
     Dosage: 430 MG AS DIRECTED
     Route: 042
     Dates: start: 20170801, end: 20170928
  2. BORTEZOMIB [Suspect]
     Active Substance: BORTEZOMIB
     Indication: PLASMA CELL MYELOMA
     Dosage: DOSE 1.5 AS DIRECTED
     Route: 058
     Dates: start: 20140107, end: 20171010

REACTIONS (1)
  - West Nile viral infection [Fatal]
